FAERS Safety Report 5318731-8 (Version None)
Quarter: 2007Q2

REPORT INFORMATION
  Report Type: 
  Country: None (occurrence: None)
  Receive Date: 20070503
  Receipt Date: 20070503
  Transmission Date: 20071010
  Serious: Yes (Hospitalization)
  Sender: FDA-Public Use
  Company Number: None

PATIENT
  Age: 76 Year
  Sex: Female

DRUGS (1)
  1. DIVALPROEX SODIUM [Suspect]

REACTIONS (3)
  - HYPONATRAEMIA [None]
  - URINE OSMOLARITY INCREASED [None]
  - URINE SODIUM INCREASED [None]
